FAERS Safety Report 9503191 (Version 1)
Quarter: 2013Q3

REPORT INFORMATION
  Report Type: Spontaneous
  Country: US (occurrence: US)
  Receive Date: 20130906
  Receipt Date: 20130906
  Transmission Date: 20140515
  Serious: No
  Sender: FDA-Public Use
  Company Number: US-PFIZER INC-2013254526

PATIENT
  Age: 77 Year
  Sex: Female
  Weight: 58.96 kg

DRUGS (6)
  1. FLECTOR [Suspect]
     Dosage: UNK
     Route: 062
  2. ADVIL GELCAPS [Suspect]
     Indication: ARTHRALGIA
     Dosage: 200 MG, 5X DAY
  3. NORVASC [Concomitant]
     Indication: BLOOD PRESSURE ABNORMAL
     Dosage: 2.5 MG, 1X/DAY
  4. NORVASC [Concomitant]
     Indication: HYPERTENSION
  5. DIOVAN HCT [Concomitant]
     Indication: BLOOD PRESSURE ABNORMAL
     Dosage: HYDROCHLOROTHIAZIDE 12.5 MG/ VALSARTAN 160 MG 1X/DAY
  6. DIOVAN HCT [Concomitant]
     Indication: HYPERTENSION

REACTIONS (2)
  - Cartilage injury [Not Recovered/Not Resolved]
  - Abdominal discomfort [Unknown]
